FAERS Safety Report 14860182 (Version 1)
Quarter: 2018Q2

REPORT INFORMATION
  Report Type: Spontaneous
  Country: US (occurrence: US)
  Receive Date: 20180420
  Receipt Date: 20180420
  Transmission Date: 20180711
  Serious: Yes (Hospitalization, Other)
  Sender: FDA-Public Use
  Company Number: None

PATIENT
  Sex: Male

DRUGS (9)
  1. PROPRANOLOL 10MG [Concomitant]
  2. ROSUVASTATIN 5MG [Concomitant]
     Active Substance: ROSUVASTATIN
  3. LEVOTHYROXINE 50MCG [Concomitant]
     Active Substance: LEVOTHYROXINE
  4. VITAMIN D 50,000 UNITS [Concomitant]
  5. FOLIC ACID 1 MG [Concomitant]
  6. LEVETIRACETAM 500MG [Concomitant]
     Active Substance: LEVETIRACETAM
  7. METHIMAZOLE 10MG [Concomitant]
  8. RAMIPRIL 10MG [Concomitant]
     Active Substance: RAMIPRIL
  9. FORTEO [Suspect]
     Active Substance: TERIPARATIDE
     Indication: OSTEOPOROSIS
     Route: 058
     Dates: start: 20180111

REACTIONS (1)
  - Renal cancer [None]
